FAERS Safety Report 9780498 (Version 1)
Quarter: 2013Q4

REPORT INFORMATION
  Report Type: Report from Study
  Country: US (occurrence: US)
  Receive Date: 20131224
  Receipt Date: 20131224
  Transmission Date: 20140711
  Serious: Yes (Hospitalization)
  Sender: FDA-Public Use
  Company Number: US-009507513-1312USA008900

PATIENT
  Age: 52 Year
  Sex: Male
  Weight: 74.8 kg

DRUGS (20)
  1. POLYETHYLENE GLYCOL 3350 [Suspect]
     Indication: CONSTIPATION
     Dosage: DAILY DOSE 17 G
     Dates: start: 20121126
  2. LEVOTHYROXINE SODIUM [Suspect]
     Indication: HYPOTHYROIDISM
     Dosage: DAILY DOSE 75 UG
     Dates: start: 20130102
  3. LEVOTHYROXINE SODIUM [Suspect]
     Dosage: DAILY DOSE 88 UG
     Route: 048
     Dates: start: 20130226, end: 20130409
  4. LEVOTHYROXINE SODIUM [Suspect]
     Dosage: DAILY DOSE 100 UG
     Route: 048
     Dates: start: 20130409
  5. DEXAMETHASONE [Suspect]
     Indication: CANCER PAIN
     Dosage: DAILY DOSE 8 MG
     Route: 042
     Dates: start: 20130601, end: 20130601
  6. CETUXIMAB [Suspect]
     Indication: NEOPLASM MALIGNANT
     Dosage: LAST DOSE TAKEN ON 19-MAR-2013: 485 MG; LAST DOSE ON 28-MAY-2013: 478 MG (1 IN 1WK)
     Route: 042
     Dates: start: 20130102, end: 20130528
  7. FENTANYL [Suspect]
     Indication: CANCER PAIN
     Dosage: DAILY DOSE 12 UNIT NOT REPORTED
     Route: 062
     Dates: start: 20100315
  8. MINOCYCLINE [Suspect]
     Indication: PRODUCT USED FOR UNKNOWN INDICATION
     Dosage: DAILY DOSE 100 MG
     Route: 048
     Dates: start: 20130312, end: 20130507
  9. JEVITY [Concomitant]
     Dosage: DAILY DOSE 250 UNIT NOT REPORTED
     Dates: start: 20100212
  10. LORAZEPAM [Concomitant]
     Indication: ANXIETY
     Dosage: DAILY DOSE 0.5 MG
     Dates: start: 20120705
  11. BENADRYL [Concomitant]
     Indication: PREMEDICATION
     Dosage: DAILY DOSE 25 MG
     Route: 042
     Dates: start: 20130122, end: 20130528
  12. NYSTATIN [Concomitant]
     Indication: CANDIDA INFECTION
     Dosage: DAILY DOSE 1
     Route: 061
     Dates: start: 20130122
  13. NYSTATIN [Concomitant]
     Dosage: DAILY DOSE 5 ML
     Route: 048
     Dates: start: 20130514
  14. ZANTAC [Concomitant]
     Indication: PROPHYLAXIS
     Dosage: DAILY DOSE 150 MG
     Route: 048
     Dates: start: 20130108
  15. CHLORHEXIDINE GLUCONATE [Concomitant]
     Dosage: DAILY DOSE 10 ML
     Route: 048
     Dates: start: 20130514
  16. FLONASE [Concomitant]
     Indication: COUGH
     Dosage: DAILY DOSE 2 SPRAYS
     Route: 045
     Dates: start: 20130514
  17. MORPHINE SULFATE [Concomitant]
     Indication: CANCER PAIN
     Dosage: DAILY DOSE 3 MG
     Route: 042
     Dates: start: 20130601, end: 20130601
  18. HYDROMORPHONE HYDROCHLORIDE [Concomitant]
     Dosage: DAILY DOSE 2 MG
     Route: 042
     Dates: start: 20130601, end: 20130602
  19. IBUPROFEN [Concomitant]
     Indication: CANCER PAIN
     Dosage: DAILY DOSE ND
     Route: 048
     Dates: start: 20130305
  20. GLYCOPYRROLATE [Concomitant]
     Dosage: DAILY DOSE 0.8 MG
     Route: 055
     Dates: start: 20130601, end: 20130602

REACTIONS (1)
  - Mental status changes [Recovered/Resolved]
